FAERS Safety Report 10248633 (Version 1)
Quarter: 2014Q2

REPORT INFORMATION
  Report Type: Spontaneous
  Country: US (occurrence: None)
  Receive Date: 20140617
  Receipt Date: 20140617
  Transmission Date: 20141212
  Serious: Yes (Hospitalization)
  Sender: FDA-Public Use
  Company Number: None

PATIENT
  Age: 64 Year
  Sex: Female
  Weight: 98.8 kg

DRUGS (10)
  1. TRADJENTA [Suspect]
     Indication: TYPE 2 DIABETES MELLITUS
     Dosage: 1 PILL QD ORAL
     Route: 048
  2. LOPRESSOR [Concomitant]
  3. IMDUR [Concomitant]
  4. LISINOPRIL [Concomitant]
  5. ZOCOR [Concomitant]
  6. ARIMIDEX [Concomitant]
  7. ASA [Concomitant]
  8. HUMALOG [Concomitant]
  9. CALCIUM W/ D [Concomitant]
  10. LINAGLIPTIN [Concomitant]

REACTIONS (2)
  - Back pain [None]
  - Chest pain [None]
